FAERS Safety Report 7442101-X (Version None)
Quarter: 2011Q2

REPORT INFORMATION
  Report Type: 
  Country: None (occurrence: None)
  Receive Date: 20110428
  Receipt Date: 20101213
  Transmission Date: 20111010
  Serious: Yes (Other)
  Sender: FDA-Public Use
  Company Number: US-BAYER-201029564NA

PATIENT
  Age: 21 Year
  Sex: Female
  Weight: 61 kg

DRUGS (7)
  1. LEVAQUIN [Concomitant]
     Indication: URINARY TRACT INFECTION
     Dosage: UNK
     Dates: start: 20080622
  2. YASMIN [Suspect]
     Indication: CONTRACEPTION
     Route: 048
     Dates: start: 20040101, end: 20080615
  3. IBUPROFEN [Concomitant]
     Indication: HEADACHE
  4. MOTRIN [Concomitant]
     Dosage: UNK
     Dates: start: 20080622
  5. YAZ [Suspect]
     Indication: PRODUCT USED FOR UNKNOWN INDICATION
     Route: 048
     Dates: start: 20080101, end: 20090415
  6. YASMIN [Suspect]
     Indication: ACNE
  7. MINOCYCLINE [Concomitant]
     Indication: ACNE

REACTIONS (4)
  - GALLBLADDER PAIN [None]
  - POST CHOLECYSTECTOMY SYNDROME [None]
  - CHOLELITHIASIS [None]
  - CHOLECYSTITIS [None]
